FAERS Safety Report 19779725 (Version 1)
Quarter: 2021Q3

REPORT INFORMATION
  Report Type: Spontaneous
  Country: CH (occurrence: CH)
  Receive Date: 20210902
  Receipt Date: 20210902
  Transmission Date: 20211014
  Serious: Yes (Other)
  Sender: FDA-Public Use
  Company Number: CH-TOPROL-2021000176

PATIENT
  Age: 83 Year
  Sex: Female

DRUGS (9)
  1. COLCHICINE. [Suspect]
     Active Substance: COLCHICINE
     Route: 048
     Dates: start: 20210727, end: 20210728
  2. BELOC ZOK 200MG [Suspect]
     Active Substance: METOPROLOL SUCCINATE
     Route: 048
  3. COLCHICINE. [Suspect]
     Active Substance: COLCHICINE
     Route: 048
     Dates: start: 20210624, end: 20210630
  4. TORASEMIDE [Concomitant]
     Active Substance: TORSEMIDE
     Route: 048
  5. CALCIUM AND VITAMIN D3 [Concomitant]
     Active Substance: CALCIUM\CHOLECALCIFEROL
     Route: 048
  6. CORDARONE [Suspect]
     Active Substance: AMIODARONE HYDROCHLORIDE
     Route: 048
  7. SPIRONOLACTONE. [Concomitant]
     Active Substance: SPIRONOLACTONE
     Route: 048
  8. COLCHICINE. [Suspect]
     Active Substance: COLCHICINE
     Route: 048
     Dates: start: 20210525, end: 20210529
  9. APIXABAN [Concomitant]
     Active Substance: APIXABAN
     Route: 048

REACTIONS (2)
  - Asthenia [Not Recovered/Not Resolved]
  - Blood creatine phosphokinase increased [Not Recovered/Not Resolved]

NARRATIVE: CASE EVENT DATE: 20210525
